FAERS Safety Report 7355308-7 (Version None)
Quarter: 2011Q1

REPORT INFORMATION
  Report Type: 
  Country: None (occurrence: None)
  Receive Date: 20110316
  Receipt Date: 20110311
  Transmission Date: 20110831
  Serious: Yes (Hospitalization)
  Sender: FDA-Public Use
  Company Number: CN-ROCHE-690258

PATIENT
  Sex: Male
  Weight: 51 kg

DRUGS (3)
  1. DULCAMARA [Concomitant]
     Indication: OVERWEIGHT
     Dosage: FORM: PILL
     Route: 048
     Dates: start: 20110211
  2. CISPLATIN [Suspect]
     Indication: GASTRIC CANCER
     Dosage: LAST DOSE PRIOR TO SAE 10 FEBRUARY 2010, TEMPORARILY INTERRUPTED
     Route: 042
     Dates: start: 20100120, end: 20100303
  3. CAPECITABINE [Suspect]
     Indication: GASTRIC CANCER
     Dosage: FORM: PELLET, LAST DOSE PRIOR TO SAE 24 FEBRUARY 2010, TEMPORARILY INTERRUPTED
     Route: 048
     Dates: start: 20100120, end: 20100303

REACTIONS (1)
  - INTESTINAL OBSTRUCTION [None]
